FAERS Safety Report 4594947-3 (Version None)
Quarter: 2005Q1

REPORT INFORMATION
  Report Type: 
  Country: None (occurrence: None)
  Receive Date: 20050301
  Receipt Date: 20050215
  Transmission Date: 20050727
  Serious: Yes (Other)
  Sender: FDA-Public Use
  Company Number: HQWYE356116FEB05

PATIENT
  Sex: Female
  Weight: 86.7 kg

DRUGS (13)
  1. ENBREL [Suspect]
     Indication: RHEUMATOID ARTHRITIS
     Dosage: NOT PROVIDED
     Dates: end: 20010601
  2. ENBREL [Suspect]
     Dosage: NOT PROVIDED
  3. REMICADE [Suspect]
     Indication: RHEUMATOID ARTHRITIS
     Dosage: NOT PROVIDED
     Route: 042
     Dates: start: 20020503, end: 20021126
  4. METHOTREXATE [Concomitant]
  5. ARAVA [Concomitant]
  6. VIOXX [Concomitant]
  7. PLAQUENIL [Concomitant]
     Route: 048
  8. TRAZODONE HCL [Concomitant]
  9. FOLIC ACID [Concomitant]
  10. COREG [Concomitant]
  11. LOTENSIN [Concomitant]
  12. FUROSEMIDE [Concomitant]
  13. POTASSIUM CHLORIDE [Concomitant]

REACTIONS (10)
  - BLOOD CHOLESTEROL INCREASED [None]
  - BRONCHITIS [None]
  - CARDIAC FAILURE CONGESTIVE [None]
  - CONDITION AGGRAVATED [None]
  - CONGESTIVE CARDIOMYOPATHY [None]
  - HYPOAESTHESIA [None]
  - HYPOTENSION [None]
  - MITRAL VALVE INCOMPETENCE [None]
  - RHEUMATOID ARTHRITIS [None]
  - SYNOVITIS [None]
